FAERS Safety Report 11864930 (Version 1)
Quarter: 2015Q4

REPORT INFORMATION
  Report Type: Spontaneous
  Country: US (occurrence: US)
  Receive Date: 20151223
  Receipt Date: 20151223
  Transmission Date: 20160305
  Serious: Yes (Other)
  Sender: FDA-Public Use
  Company Number: US-TEVA-619797ACC

PATIENT
  Sex: Female

DRUGS (1)
  1. PARAGARD T 380A [Suspect]
     Active Substance: COPPER
     Dates: start: 201206, end: 201409

REACTIONS (4)
  - Device expulsion [Recovered/Resolved]
  - Menstruation irregular [Unknown]
  - Abortion spontaneous [Unknown]
  - Device colour issue [Unknown]

NARRATIVE: CASE EVENT DATE: 201409
